FAERS Safety Report 9101227 (Version 4)
Quarter: 2013Q3

REPORT INFORMATION
  Report Type: Spontaneous
  Country: DE (occurrence: DE)
  Receive Date: 20130217
  Receipt Date: 20130716
  Transmission Date: 20140515
  Serious: Yes (Disabling, Other)
  Sender: FDA-Public Use
  Company Number: DE-BRISTOL-MYERS SQUIBB COMPANY-17361858

PATIENT
  Age: 67 Year
  Sex: Female
  Weight: 75 kg

DRUGS (1)
  1. IPILIMUMAB [Suspect]
     Indication: METASTATIC MALIGNANT MELANOMA
     Dosage: NO OF DOSE:3?TOTAL DOSE-216MG
     Route: 042
     Dates: start: 20121029, end: 20121210

REACTIONS (6)
  - Large intestine perforation [Recovering/Resolving]
  - Clostridial infection [Recovering/Resolving]
  - Diverticulitis [Recovering/Resolving]
  - Peritonitis [Recovering/Resolving]
  - Colitis [Recovering/Resolving]
  - Ileus paralytic [Unknown]
